FAERS Safety Report 11218056 (Version 1)
Quarter: 2015Q2

REPORT INFORMATION
  Report Type: Spontaneous
  Country: US (occurrence: None)
  Receive Date: 20150624
  Receipt Date: 20150624
  Transmission Date: 20150821
  Serious: Yes (Life-Threatening, Hospitalization)
  Sender: FDA-Public Use
  Company Number: None

PATIENT
  Age: 82 Year
  Sex: Female
  Weight: 70 kg

DRUGS (2)
  1. CEPHALEXIN. [Suspect]
     Active Substance: CEPHALEXIN
     Indication: ARTHROPOD BITE
     Route: 048
     Dates: start: 20150529, end: 20150529
  2. CEPHALEXIN. [Suspect]
     Active Substance: CEPHALEXIN
     Indication: RASH
     Route: 048
     Dates: start: 20150529, end: 20150529

REACTIONS (3)
  - Hypotension [None]
  - Anaphylactic shock [None]
  - Dyspnoea [None]

NARRATIVE: CASE EVENT DATE: 20150529
